FAERS Safety Report 4288778-1 (Version None)
Quarter: 2004Q1

REPORT INFORMATION
  Report Type: 
  Country: None (occurrence: None)
  Receive Date: 20040128
  Receipt Date: 20040119
  Transmission Date: 20041129
  Serious: Yes (Death)
  Sender: FDA-Public Use
  Company Number: IGH/ 04/01/LIT

PATIENT
  Age: 75 Year
  Sex: Male

DRUGS (2)
  1. IMMUNE GLOBULIN INTRAVENOUS (HUMAN) [Suspect]
     Indication: TOXIC EPIDERMAL NECROLYSIS
     Dosage: 400 MG/KG, IV
     Route: 042
  2. ANTIBIOTICS (ANTIBIOTICS) [Concomitant]

REACTIONS (1)
  - CARDIAC ARREST [None]
